FAERS Safety Report 23905981 (Version 2)
Quarter: 2024Q2

REPORT INFORMATION
  Report Type: Spontaneous
  Country: JP (occurrence: JP)
  Receive Date: 20240527
  Receipt Date: 20240603
  Transmission Date: 20240715
  Serious: Yes (Death, Other)
  Sender: FDA-Public Use
  Company Number: JP-002147023-NVSJ2024JP006159

PATIENT
  Sex: Male
  Weight: 74.2 kg

DRUGS (21)
  1. ENTRESTO [Suspect]
     Active Substance: SACUBITRIL\VALSARTAN
     Indication: Cardiac failure
     Dosage: UNK
     Route: 048
     Dates: start: 20240217, end: 20240223
  2. TOLVAPTAN [Suspect]
     Active Substance: TOLVAPTAN
     Indication: Fluid retention
     Dosage: 8 MG, QD
     Route: 065
     Dates: start: 20240220, end: 20240220
  3. TOLVAPTAN [Suspect]
     Active Substance: TOLVAPTAN
     Dosage: 16 MG, QD
     Route: 065
     Dates: start: 20240221, end: 20240223
  4. LASIX [Suspect]
     Active Substance: FUROSEMIDE
     Indication: Product used for unknown indication
     Dosage: 40 MG
     Route: 040
     Dates: start: 20240213, end: 20240213
  5. LASIX [Suspect]
     Active Substance: FUROSEMIDE
     Dosage: 100 MG
     Route: 042
     Dates: start: 20240214, end: 20240218
  6. LASIX [Suspect]
     Active Substance: FUROSEMIDE
     Dosage: 200 MG
     Route: 042
     Dates: start: 20240219, end: 20240221
  7. LASIX [Suspect]
     Active Substance: FUROSEMIDE
     Dosage: 300 MG
     Route: 042
     Dates: start: 20240222, end: 20240223
  8. SPIRONOLACTONE [Concomitant]
     Active Substance: SPIRONOLACTONE
     Indication: Product used for unknown indication
     Dosage: 25 MG
     Route: 048
     Dates: start: 20240215, end: 20240223
  9. SAMSCA [Concomitant]
     Active Substance: TOLVAPTAN
     Indication: Product used for unknown indication
     Dosage: 7.5 MG
     Route: 048
     Dates: start: 20240217, end: 20240220
  10. AMLODIPINE [Concomitant]
     Active Substance: AMLODIPINE BESYLATE
     Indication: Product used for unknown indication
     Dosage: UNK
     Route: 048
     Dates: end: 20240222
  11. VONOPRAZAN FUMARATE [Concomitant]
     Active Substance: VONOPRAZAN FUMARATE
     Indication: Product used for unknown indication
     Dosage: UNK
     Route: 048
     Dates: end: 20240222
  12. RISPERIDONE [Concomitant]
     Active Substance: RISPERIDONE
     Indication: Product used for unknown indication
     Dosage: UNK
     Route: 048
     Dates: start: 20240214, end: 20240223
  13. RAMELTEON [Concomitant]
     Active Substance: RAMELTEON
     Indication: Product used for unknown indication
     Dosage: UNK
     Route: 048
     Dates: start: 20240215, end: 20240222
  14. JARDIANCE [Concomitant]
     Active Substance: EMPAGLIFLOZIN
     Indication: Cardiac failure
     Dosage: UNK
     Route: 048
     Dates: start: 20240215, end: 20240223
  15. VERICIGUAT [Concomitant]
     Active Substance: VERICIGUAT
     Indication: Cardiac failure
     Dosage: UNK
     Route: 048
     Dates: start: 20240217, end: 20240223
  16. POLAPREZINC [Concomitant]
     Active Substance: POLAPREZINC
     Indication: Product used for unknown indication
     Dosage: UNK
     Route: 048
     Dates: start: 20240216, end: 20240223
  17. BELSOMRA [Concomitant]
     Active Substance: SUVOREXANT
     Indication: Product used for unknown indication
     Dosage: UNK
     Route: 048
     Dates: start: 20240220, end: 20240223
  18. HEPARIN SODIUM [Concomitant]
     Active Substance: HEPARIN SODIUM
     Indication: Prophylaxis
     Dosage: UNK
     Route: 042
     Dates: start: 20240211, end: 20240223
  19. CARPERITIDE [Concomitant]
     Active Substance: CARPERITIDE
     Indication: Cardiac failure
     Dosage: UNK
     Route: 042
     Dates: start: 20240213, end: 20240223
  20. DOBUTAMINE [Concomitant]
     Active Substance: DOBUTAMINE HYDROCHLORIDE
     Indication: Cardiac failure
     Dosage: UNK
     Route: 042
     Dates: start: 20240213, end: 20240223
  21. DEXMEDETOMIDINE [Concomitant]
     Active Substance: DEXMEDETOMIDINE
     Indication: Product used for unknown indication
     Dosage: UNK
     Route: 042
     Dates: start: 20240213, end: 20240223

REACTIONS (10)
  - Chronic kidney disease [Fatal]
  - Cardiac failure [Fatal]
  - Blood pressure decreased [Fatal]
  - Bradycardia [Fatal]
  - Cardiac arrest [Fatal]
  - Pulmonary congestion [Fatal]
  - Oedema peripheral [Fatal]
  - Dyspnoea [Fatal]
  - Rales [Fatal]
  - Haemoglobin decreased [Unknown]

NARRATIVE: CASE EVENT DATE: 20240224
